FAERS Safety Report 17939534 (Version 1)
Quarter: 2020Q2

REPORT INFORMATION
  Report Type: Report from Study
  Country: US (occurrence: US)
  Receive Date: 20200624
  Receipt Date: 20200624
  Transmission Date: 20200714
  Serious: Yes (Hospitalization)
  Sender: FDA-Public Use
  Company Number: US-SAOL THERAPEUTICS-2020SAO00061

PATIENT
  Age: 47 Year
  Sex: Female
  Weight: 63.49 kg

DRUGS (7)
  1. LIORESAL [Suspect]
     Active Substance: BACLOFEN
     Dosage: 500 ?G, \DAY
     Route: 037
     Dates: start: 20200219, end: 20200219
  2. LIORESAL [Suspect]
     Active Substance: BACLOFEN
     Dosage: 650 ?G, \DAY
     Route: 037
     Dates: start: 20200219, end: 20200224
  3. LIORESAL [Suspect]
     Active Substance: BACLOFEN
     Dosage: 700 ?G, \DAY
     Route: 037
     Dates: start: 20200224, end: 20200224
  4. LIORESAL [Suspect]
     Active Substance: BACLOFEN
     Dosage: 350 ?G, \DAY
     Route: 037
     Dates: start: 20200217, end: 20200219
  5. LIORESAL [Suspect]
     Active Substance: BACLOFEN
     Indication: PARAPLEGIA
     Dosage: 50 ?G, \DAY (ALSO REPORTED AS 49.95844 ?G/DAY)
     Route: 037
     Dates: start: 20200212, end: 202002
  6. LIORESAL [Suspect]
     Active Substance: BACLOFEN
     Dosage: 250 ?G, \DAY
     Route: 037
     Dates: start: 20200217, end: 20200217
  7. LIORESAL [Suspect]
     Active Substance: BACLOFEN
     Dosage: 850 ?G, \DAY
     Route: 037
     Dates: start: 20200224

REACTIONS (4)
  - Muscle rigidity [Recovering/Resolving]
  - Neurogenic bladder [Recovering/Resolving]
  - Muscle spasticity [Recovering/Resolving]
  - Asthenia [Recovering/Resolving]

NARRATIVE: CASE EVENT DATE: 20200212
